FAERS Safety Report 6982849-4 (Version None)
Quarter: 2010Q3

REPORT INFORMATION
  Report Type: 
  Country: None (occurrence: None)
  Receive Date: 20100914
  Receipt Date: 20100413
  Transmission Date: 20110219
  Serious: Yes (Other)
  Sender: FDA-Public Use
  Company Number: US-PFIZER INC-2010047169

PATIENT
  Sex: Male

DRUGS (1)
  1. LYRICA [Suspect]

REACTIONS (7)
  - AGITATION [None]
  - CONFUSIONAL STATE [None]
  - DYSARTHRIA [None]
  - MOOD SWINGS [None]
  - SKIN LESION [None]
  - SUICIDAL IDEATION [None]
  - VISION BLURRED [None]
